FAERS Safety Report 5323590-3 (Version None)
Quarter: 2007Q2

REPORT INFORMATION
  Report Type: 
  Country: None (occurrence: None)
  Receive Date: 20070509
  Receipt Date: 20070509
  Transmission Date: 20071010
  Serious: Yes (Other)
  Sender: FDA-Public Use
  Company Number: None

PATIENT
  Sex: Male
  Weight: 51.1657 kg

DRUGS (2)
  1. DOCETAXEL [Suspect]
     Indication: METASTASIS
     Dosage: 8MG ONCE IV
     Route: 042
     Dates: start: 20070508
  2. DOCETAXEL [Suspect]
     Indication: NEOPLASM MALIGNANT
     Dosage: 8MG ONCE IV
     Route: 042
     Dates: start: 20070508

REACTIONS (7)
  - BLOOD PRESSURE SYSTOLIC INCREASED [None]
  - ELECTROCARDIOGRAM T WAVE ABNORMAL [None]
  - HEART RATE DECREASED [None]
  - INFUSION RELATED REACTION [None]
  - LEFT ATRIAL DILATATION [None]
  - OXYGEN SATURATION DECREASED [None]
  - STRIDOR [None]
